FAERS Safety Report 25443023 (Version 3)
Quarter: 2025Q2

REPORT INFORMATION
  Report Type: Spontaneous
  Country: US (occurrence: US)
  Receive Date: 20250617
  Receipt Date: 20250627
  Transmission Date: 20250717
  Serious: Yes (Hospitalization)
  Sender: MERCK SHARP & DOHME LLC
  Company Number: US-009507513-2295457

PATIENT
  Age: 64 Year
  Sex: Male
  Weight: 94.347 kg

DRUGS (31)
  1. SOTATERCEPT [Suspect]
     Active Substance: SOTATERCEPT
     Indication: Product used for unknown indication
     Dosage: HALF DOSE
     Dates: start: 20250529, end: 202506
  2. SOTATERCEPT [Suspect]
     Active Substance: SOTATERCEPT
  3. REMODULIN [Suspect]
     Active Substance: TREPROSTINIL
     Indication: Pulmonary arterial hypertension
     Route: 058
     Dates: start: 20250428
  4. JARDIANCE [Concomitant]
     Active Substance: EMPAGLIFLOZIN
  5. ATORVASTATIN CALCIUM [Concomitant]
     Active Substance: ATORVASTATIN CALCIUM
  6. MAGNESIUM OXIDE [Concomitant]
     Active Substance: MAGNESIUM OXIDE
  7. SODIUM CHLORIDE [Concomitant]
     Active Substance: SODIUM CHLORIDE
  8. OPSUMIT [Concomitant]
     Active Substance: MACITENTAN
  9. TRELEGY ELLIPTA [Concomitant]
     Active Substance: FLUTICASONE FUROATE\UMECLIDINIUM BROMIDE\VILANTEROL TRIFENATATE
  10. PROTONIX [Concomitant]
     Active Substance: PANTOPRAZOLE SODIUM
  11. KETAMINE HYDROCHLORIDE [Concomitant]
     Active Substance: KETAMINE HYDROCHLORIDE
  12. LECITHIN [Concomitant]
     Active Substance: LECITHIN
  13. ASPIRIN [Suspect]
     Active Substance: ASPIRIN
     Indication: Product used for unknown indication
     Dates: end: 202506
  14. VITAMIN D3 [Concomitant]
     Active Substance: CHOLECALCIFEROL
  15. GABAPENTIN [Concomitant]
     Active Substance: GABAPENTIN
  16. ALBUTEROL SULFATE [Concomitant]
     Active Substance: ALBUTEROL SULFATE
  17. ALLOPURINOL [Concomitant]
     Active Substance: ALLOPURINOL
  18. TADALAFIL [Concomitant]
     Active Substance: TADALAFIL
  19. MOUNJARO [Concomitant]
     Active Substance: TIRZEPATIDE
  20. METOPROLOL SUCCINATE [Concomitant]
     Active Substance: METOPROLOL SUCCINATE
  21. CLONIDINE [Concomitant]
     Active Substance: CLONIDINE
  22. KETOPROFEN [Suspect]
     Active Substance: KETOPROFEN
  23. OXYGEN [Concomitant]
     Active Substance: OXYGEN
  24. SPIRONOLACTONE [Concomitant]
     Active Substance: SPIRONOLACTONE
  25. VASCEPA [Concomitant]
     Active Substance: ICOSAPENT ETHYL
  26. LIDOCAINE HYDROCHLORIDE [Concomitant]
     Active Substance: LIDOCAINE HYDROCHLORIDE
  27. XARELTO [Suspect]
     Active Substance: RIVAROXABAN
  28. AMITRIPTYLINE HYDROCHLORIDE [Concomitant]
     Active Substance: AMITRIPTYLINE HYDROCHLORIDE
     Dates: end: 2025
  29. POLOXAMER [Concomitant]
     Active Substance: POLOXAMER
  30. TORSEMIDE [Concomitant]
     Active Substance: TORSEMIDE
  31. SILDENAFIL [Concomitant]
     Active Substance: SILDENAFIL

REACTIONS (3)
  - Gastrointestinal haemorrhage [Unknown]
  - Anaemia [Unknown]
  - Product use issue [Unknown]

NARRATIVE: CASE EVENT DATE: 20250529
